FAERS Safety Report 14895915 (Version 3)
Quarter: 2018Q3

REPORT INFORMATION
  Report Type: Spontaneous
  Country: US (occurrence: US)
  Receive Date: 20180515
  Receipt Date: 20180830
  Transmission Date: 20181010
  Serious: Yes (Other)
  Sender: FDA-Public Use
  Company Number: US-UCBSA-2018019818

PATIENT
  Sex: Female

DRUGS (1)
  1. CIMZIA [Suspect]
     Active Substance: CERTOLIZUMAB PEGOL
     Indication: RHEUMATOID ARTHRITIS
     Dosage: 400 MG, MONTHLY (QM) 200 MG 2X1 ML
     Route: 058
     Dates: start: 2017

REACTIONS (5)
  - Infection [Unknown]
  - Fatigue [Unknown]
  - Nausea [Unknown]
  - Surgery [Unknown]
  - Chills [Unknown]
